FAERS Safety Report 8117022-X (Version None)
Quarter: 2011Q4

REPORT INFORMATION
  Report Type: 
  Country: None (occurrence: None)
  Receive Date: 20111227
  Receipt Date: 20110322
  Transmission Date: 20120403
  Serious: Yes (Other)
  Sender: FDA-Public Use
  Company Number: PHHY2011US23905

PATIENT
  Sex: Female

DRUGS (1)
  1. FEMARA [Suspect]
     Dosage: 2.5 MG, QD

REACTIONS (4)
  - MEMORY IMPAIRMENT [None]
  - WEIGHT INCREASED [None]
  - COGNITIVE DISORDER [None]
  - ALOPECIA [None]
